FAERS Safety Report 23825201 (Version 2)
Quarter: 2024Q2

REPORT INFORMATION
  Report Type: Report from Study
  Country: CA (occurrence: CA)
  Receive Date: 20240507
  Receipt Date: 20240607
  Transmission Date: 20240716
  Serious: Yes (Other)
  Sender: FDA-Public Use
  Company Number: CA-OTSUKA-2022_054375

PATIENT
  Sex: Male

DRUGS (4)
  1. TOLVAPTAN [Suspect]
     Active Substance: TOLVAPTAN
     Indication: Congenital cystic kidney disease
     Dosage: 45 MG
     Route: 065
     Dates: start: 202009, end: 20230921
  2. TOLVAPTAN [Suspect]
     Active Substance: TOLVAPTAN
     Indication: Congenital cystic kidney disease
     Dosage: 15 MG
     Route: 065
     Dates: start: 202009, end: 20230921
  3. TOLVAPTAN [Suspect]
     Active Substance: TOLVAPTAN
     Dosage: RESTARTED AT SMALL DOSES
     Route: 065
  4. RAMIPRIL [Concomitant]
     Active Substance: RAMIPRIL
     Indication: Product used for unknown indication
     Dosage: UNK
     Route: 065

REACTIONS (5)
  - Occult blood [Unknown]
  - Anaemia [Unknown]
  - Economic problem [Unknown]
  - Drug monitoring procedure not performed [Unknown]
  - Therapy cessation [Unknown]
